FAERS Safety Report 23788548 (Version 1)
Quarter: 2024Q2

REPORT INFORMATION
  Report Type: Spontaneous
  Country: US (occurrence: US)
  Receive Date: 20240426
  Receipt Date: 20240426
  Transmission Date: 20240715
  Serious: Yes (Hospitalization, Other)
  Sender: FDA-Public Use
  Company Number: US-009507513-2404USA010061

PATIENT
  Sex: Female

DRUGS (7)
  1. KEYTRUDA [Suspect]
     Active Substance: PEMBROLIZUMAB
     Indication: Breast cancer stage III
     Dosage: ROUTE OF ADMINISTRATION: INFUSION
  2. KEYTRUDA [Suspect]
     Active Substance: PEMBROLIZUMAB
     Indication: Metastases to lymph nodes
     Dosage: THE THIRD DOSE; ROUTE OF ADMINISTRATION: INFUSION
  3. KEYTRUDA [Suspect]
     Active Substance: PEMBROLIZUMAB
     Indication: Breast cancer metastatic
  4. ASPIRIN [Concomitant]
     Active Substance: ASPIRIN
     Dosage: 81 MILLIGRAM
  5. DOXYCYCLINE [Concomitant]
     Active Substance: DOXYCYCLINE
     Dosage: 50 MILLIGRAM, BID
  6. PREDNISONE [Concomitant]
     Active Substance: PREDNISONE
     Dosage: 20 MG 2 IN MORNING- 1 AT NIGHT (BID)
  7. LEVOTHYROXINE [Concomitant]
     Active Substance: LEVOTHYROXINE\LEVOTHYROXINE SODIUM
     Dosage: 112 MILLIGRAM, 6 TIMES WEEKLY (SKIPS SUNDAY)

REACTIONS (11)
  - Infection [Not Recovered/Not Resolved]
  - Pyoderma gangrenosum [Not Recovered/Not Resolved]
  - Abdominoplasty [Unknown]
  - Breast reconstruction [Unknown]
  - Autoimmune disorder [Not Recovered/Not Resolved]
  - Renal impairment [Not Recovered/Not Resolved]
  - Thyroid disorder [Not Recovered/Not Resolved]
  - Dyspnoea [Not Recovered/Not Resolved]
  - Nausea [Not Recovered/Not Resolved]
  - Palpitations [Not Recovered/Not Resolved]
  - Immune system disorder [Not Recovered/Not Resolved]

NARRATIVE: CASE EVENT DATE: 20240101
